FAERS Safety Report 12855253 (Version 2)
Quarter: 2016Q4

REPORT INFORMATION
  Report Type: Spontaneous
  Country: NZ (occurrence: NZ)
  Receive Date: 20161017
  Receipt Date: 20161201
  Transmission Date: 20170207
  Serious: Yes (Other)
  Sender: FDA-Public Use
  Company Number: NZ-ABBVIE-16P-118-1753684-00

PATIENT
  Age: 56 Year
  Sex: Female

DRUGS (2)
  1. VIEKIRA PAK [Suspect]
     Active Substance: DASABUVIR\OMBITASVIR\PARITAPREVIR\RITONAVIR
     Indication: HEPATITIS C
     Route: 048
     Dates: end: 20160918
  2. RIBAVIRIN. [Suspect]
     Active Substance: RIBAVIRIN
     Indication: HEPATITIS C
     Route: 048

REACTIONS (10)
  - Depression [Unknown]
  - Psychotic disorder [Unknown]
  - Malaise [Unknown]
  - Frustration tolerance decreased [Unknown]
  - Emotional disorder [Unknown]
  - Feeling abnormal [Unknown]
  - Suicidal ideation [Unknown]
  - Stress [Unknown]
  - Drug dependence [Unknown]
  - Anxiety [Unknown]

NARRATIVE: CASE EVENT DATE: 201609
